FAERS Safety Report 8508889-1 (Version None)
Quarter: 2012Q3

REPORT INFORMATION
  Report Type: 
  Country: None (occurrence: None)
  Receive Date: 20120713
  Receipt Date: 20120704
  Transmission Date: 20120928
  Serious: Yes (Other)
  Sender: FDA-Public Use
  Company Number: JP-VERTEX PHARMACEUTICALS INC.-AE-2012-010024

PATIENT
  Age: 64 Year
  Sex: Male

DRUGS (4)
  1. RIBAVIRIN [Concomitant]
     Route: 048
     Dates: start: 20120507
  2. RIBAVIRIN [Concomitant]
     Route: 048
     Dates: start: 20120611
  3. TELAVIC (TELAPREVIR) [Suspect]
     Indication: HEPATITIS C
     Route: 048
     Dates: start: 20120507, end: 20120625
  4. PEGINTERFERON ALFA-2B [Concomitant]
     Route: 058
     Dates: start: 20120507

REACTIONS (4)
  - HYPERURICAEMIA [None]
  - RASH [None]
  - ERYTHEMA [None]
  - BLOOD CREATININE INCREASED [None]
